FAERS Safety Report 23406428 (Version 11)
Quarter: 2024Q4

REPORT INFORMATION
  Report Type: Spontaneous
  Country: US (occurrence: US)
  Receive Date: 20240116
  Receipt Date: 20241227
  Transmission Date: 20250115
  Serious: No
  Sender: PFIZER
  Company Number: US-PFIZER INC-PV202300194726

PATIENT
  Age: 70 Year
  Sex: Female
  Weight: 45.351 kg

DRUGS (3)
  1. IBRANCE [Suspect]
     Active Substance: PALBOCICLIB
     Indication: Breast cancer female
     Dosage: 100 MG, CYCLIC (ONCE A DAY FOR 21 DAYS THEN OFF FOR 7 DAYS)
     Route: 048
     Dates: start: 202308
  2. IBRANCE [Suspect]
     Active Substance: PALBOCICLIB
     Indication: Metastases to bone
     Dosage: 100 MG, CYCLIC (3 WEEKS ON 1 WEEK OFF/TAKE AT THE SAME TIME DAILY ON DAYS 1-21 OF EACH 28 DAY CYCLE)
     Route: 048
     Dates: start: 20231003
  3. IBRANCE [Suspect]
     Active Substance: PALBOCICLIB
     Dosage: 100 MG, CYCLIC (TAKE AT THE SAME TIME DAILY ON DAYS 1-21 OF EACH 28 DAY CYCLE. SWALLOW WHOLE)
     Route: 048
     Dates: start: 20240813

REACTIONS (3)
  - Granulocyte count decreased [Recovering/Resolving]
  - Alopecia [Recovering/Resolving]
  - Platelet count decreased [Not Recovered/Not Resolved]

NARRATIVE: CASE EVENT DATE: 20240301
